FAERS Safety Report 4303662-2 (Version None)
Quarter: 2004Q1

REPORT INFORMATION
  Report Type: 
  Country: None (occurrence: None)
  Receive Date: 20040224
  Receipt Date: 20040224
  Transmission Date: 20041129
  Serious: Yes (Hospitalization)
  Sender: FDA-Public Use
  Company Number: None

PATIENT
  Sex: Female
  Weight: 61 kg

DRUGS (3)
  1. FRAGMIN [Suspect]
     Indication: DEEP VENOUS THROMBOSIS PROPHYLAXIS
     Dosage: 2500 UNITS Q12 H SQ
     Route: 058
     Dates: start: 20040114, end: 20040118
  2. EPOGEN [Concomitant]
  3. FILGRASTIM [Concomitant]

REACTIONS (1)
  - THROMBOCYTOPENIA [None]
